FAERS Safety Report 9544344 (Version 1)
Quarter: 2013Q3

REPORT INFORMATION
  Report Type: Spontaneous
  Country: US (occurrence: US)
  Receive Date: 20130923
  Receipt Date: 20130923
  Transmission Date: 20140515
  Serious: No
  Sender: FDA-Public Use
  Company Number: US-GLAXOSMITHKLINE-A0988714A

PATIENT
  Age: 54 Year
  Sex: Female

DRUGS (1)
  1. ABREVA [Suspect]
     Indication: PRODUCT USED FOR UNKNOWN INDICATION

REACTIONS (2)
  - Incorrect route of drug administration [Unknown]
  - Product quality issue [Unknown]
